FAERS Safety Report 14843504 (Version 1)
Quarter: 2018Q2

REPORT INFORMATION
  Report Type: Report from Study
  Country: US (occurrence: US)
  Receive Date: 20180503
  Receipt Date: 20180503
  Transmission Date: 20180711
  Serious: Yes (Death, Other)
  Sender: FDA-Public Use
  Company Number: US-REGENERON PHARMACEUTICALS, INC.-2018-15250

PATIENT

DRUGS (12)
  1. EYLEA [Suspect]
     Active Substance: AFLIBERCEPT
     Dosage: OD
     Dates: start: 20171012, end: 20171012
  2. EYLEA [Suspect]
     Active Substance: AFLIBERCEPT
     Indication: PRODUCT USED FOR UNKNOWN INDICATION
     Dosage: UNK
     Dates: start: 20160817, end: 20180104
  3. EYLEA [Suspect]
     Active Substance: AFLIBERCEPT
     Dosage: OS
     Dates: start: 20161103, end: 20161103
  4. EYLEA [Suspect]
     Active Substance: AFLIBERCEPT
     Dosage: OD
     Dates: start: 20160922, end: 20160922
  5. EYLEA [Suspect]
     Active Substance: AFLIBERCEPT
     Dosage: OS
     Dates: start: 20160929, end: 20160929
  6. EYLEA [Suspect]
     Active Substance: AFLIBERCEPT
     Dosage: OD
     Dates: start: 20170515, end: 20170515
  7. EYLEA [Suspect]
     Active Substance: AFLIBERCEPT
     Dosage: OS
     Dates: start: 20160824, end: 20160824
  8. EYLEA [Suspect]
     Active Substance: AFLIBERCEPT
     Dosage: OD
     Dates: start: 20161229, end: 20161229
  9. EYLEA [Suspect]
     Active Substance: AFLIBERCEPT
     Dosage: OD
     Dates: start: 20161027, end: 20161027
  10. EYLEA [Suspect]
     Active Substance: AFLIBERCEPT
     Dosage: OD
     Dates: start: 20170302, end: 20170302
  11. EYLEA [Suspect]
     Active Substance: AFLIBERCEPT
     Dosage: OD
     Dates: start: 20170724, end: 20170724
  12. EYLEA [Suspect]
     Active Substance: AFLIBERCEPT
     Dosage: OD
     Dates: start: 20180104, end: 20180104

REACTIONS (1)
  - Death [Fatal]
